FAERS Safety Report 6697306-2 (Version None)
Quarter: 2010Q2

REPORT INFORMATION
  Report Type: 
  Country: None (occurrence: None)
  Receive Date: 20100426
  Receipt Date: 20100422
  Transmission Date: 20101027
  Serious: Yes (Death)
  Sender: FDA-Public Use
  Company Number: AU-ASTRAZENECA-2010SE17879

PATIENT
  Age: 59 Year
  Sex: Female

DRUGS (4)
  1. QUETIAPINE [Suspect]
     Route: 048
  2. TRAMADOL HYDROCHLORIDE [Suspect]
  3. DIAZEPAM [Suspect]
  4. ETHANOL [Suspect]

REACTIONS (2)
  - DRUG TOXICITY [None]
  - THERAPEUTIC AGENT TOXICITY [None]
